FAERS Safety Report 5952627-3 (Version None)
Quarter: 2008Q4

REPORT INFORMATION
  Report Type: 
  Country: None (occurrence: None)
  Receive Date: 20081028
  Receipt Date: 20070912
  Transmission Date: 20090506
  Serious: Yes (Other)
  Sender: FDA-Public Use
  Company Number: 161548USA

PATIENT
  Age: 73 Year
  Sex: Female

DRUGS (3)
  1. VINCRISTINE SULFATE [Suspect]
  2. CYCLOPHOSPHAMIDE [Suspect]
  3. CLOZAPINE [Suspect]

REACTIONS (2)
  - GRANULOCYTOPENIA [None]
  - LEUKOPENIA [None]
